FAERS Safety Report 14939869 (Version 1)
Quarter: 2018Q2

REPORT INFORMATION
  Report Type: Spontaneous
  Country: DE (occurrence: DE)
  Receive Date: 20180525
  Receipt Date: 20180525
  Transmission Date: 20180711
  Serious: Yes (Other)
  Sender: FDA-Public Use
  Company Number: DE-TEVA-2018-DE-894909

PATIENT
  Age: 72 Year
  Sex: Male

DRUGS (26)
  1. ATORVASTATIN [Concomitant]
     Active Substance: ATORVASTATIN
     Indication: CORONARY ARTERY DISEASE
     Dosage: 40 MILLIGRAM DAILY;
     Route: 065
  2. VALPROIC ACID. [Interacting]
     Active Substance: VALPROIC ACID
     Dosage: DOSE GRADUALLY INCREASED TO AN UNKNOWN LEVEL ON DAY 5; LATER INCREASED TO 1500MG
     Route: 048
  3. ACETYLSALICYLIC ACID [Concomitant]
     Active Substance: ASPIRIN
     Dosage: 100 MILLIGRAM DAILY;
     Route: 065
  4. HYDROCHLOROTHIAZIDE. [Concomitant]
     Active Substance: HYDROCHLOROTHIAZIDE
     Dosage: 12.5 MILLIGRAM DAILY;
     Route: 065
  5. QUETIAPINE. [Concomitant]
     Active Substance: QUETIAPINE
     Dosage: 25 MILLIGRAM DAILY;
     Route: 065
  6. SUCRALFATE. [Concomitant]
     Active Substance: SUCRALFATE
     Dosage: SPORADICALLY ADMINISTERED AS NEEDED
     Route: 065
  7. VALPROIC ACID. [Interacting]
     Active Substance: VALPROIC ACID
     Dosage: 900 MILLIGRAM DAILY;
     Route: 048
  8. MAGNESIUM ASPARTATE [Concomitant]
     Active Substance: MAGNESIUM ASPARTATE
     Dosage: SPORADICALLY ADMINISTERED AS NEEDED
     Route: 065
  9. AMIODARONE [Concomitant]
     Active Substance: AMIODARONE
     Dosage: SPORADICALLY ADMINISTERED AS NEEDED
     Route: 065
  10. METOPROLOL. [Concomitant]
     Active Substance: METOPROLOL
     Dosage: 95 MILLIGRAM DAILY;
     Route: 065
  11. INSULIN [Concomitant]
     Active Substance: INSULIN NOS
     Dosage: SPORADICALLY ADMINISTERED AS NEEDED
     Route: 065
  12. PIRITRAMIDE [Concomitant]
     Active Substance: PIRITRAMIDE
     Indication: PROCEDURAL PAIN
     Dosage: 15 MG/ML AS NEEDED
     Route: 040
  13. DIPYRONE [Interacting]
     Active Substance: DIPYRONE
     Indication: PROCEDURAL PAIN
     Dosage: 1000 MILLIGRAM DAILY; POSTOPERATIVE DAY 1
     Route: 042
  14. VALPROIC ACID. [Interacting]
     Active Substance: VALPROIC ACID
     Dosage: 1500 MILLIGRAM DAILY; DAY 6 AND 7
     Route: 048
  15. ALLOPURINOL. [Concomitant]
     Active Substance: ALLOPURINOL
     Dosage: 300 Q.D [UNIT NOT STATED]
     Route: 065
  16. EPINEPHRINE. [Concomitant]
     Active Substance: EPINEPHRINE
     Dosage: SPORADICALLY ADMINISTERED AS NEEDED
     Route: 065
  17. VALPROIC ACID. [Suspect]
     Active Substance: VALPROIC ACID
     Indication: EPILEPSY
     Dosage: 900 MILLIGRAM DAILY; AT THE TIME OF ADMISSION
     Route: 065
  18. DIPYRONE [Interacting]
     Active Substance: DIPYRONE
     Dosage: 3000 MILLIGRAM DAILY; ON DAY 2
     Route: 042
  19. VALPROIC ACID. [Interacting]
     Active Substance: VALPROIC ACID
     Indication: EPILEPSY
     Dosage: 1000 MILLIGRAM DAILY; POSTOPERATIVE DAY 1
     Route: 042
  20. METILDIGOXIN [Concomitant]
     Active Substance: METILDIGOXIN
     Dosage: .1 MILLIGRAM DAILY;
     Route: 065
  21. DIPYRONE [Interacting]
     Active Substance: DIPYRONE
     Dosage: 3000 MILLIGRAM DAILY; FROM DAY 3 TO DAY 10
     Route: 048
  22. ACETYLCYSTEINE. [Concomitant]
     Active Substance: ACETYLCYSTEINE
     Dosage: SPORADICALLY ADMINISTERED AS NEEDED
     Route: 065
  23. CALCIUM GLUCONATE. [Concomitant]
     Active Substance: CALCIUM GLUCONATE
     Dosage: SPORADICALLY ADMINISTERED AS NEEDED
     Route: 065
  24. POTASSIUM CHLORIDE. [Concomitant]
     Active Substance: POTASSIUM CHLORIDE
     Dosage: SPORADICALLY ADMINISTERED AS NEEDED
     Route: 065
  25. VALPROIC ACID. [Interacting]
     Active Substance: VALPROIC ACID
     Dosage: 1500 MILLIGRAM DAILY; ON DAY 2
     Route: 042
  26. DOBUTAMINE [Concomitant]
     Active Substance: DOBUTAMINE\DOBUTAMINE HYDROCHLORIDE
     Dosage: SPORADICALLY ADMINISTERED AS NEEDED
     Route: 065

REACTIONS (3)
  - Drug interaction [Recovered/Resolved]
  - Drug level below therapeutic [Recovered/Resolved]
  - Myoclonic epilepsy [Unknown]
